FAERS Safety Report 10195144 (Version 1)
Quarter: 2014Q2

REPORT INFORMATION
  Report Type: Spontaneous
  Country: US (occurrence: US)
  Receive Date: 20140526
  Receipt Date: 20140526
  Transmission Date: 20141212
  Serious: Yes (Other)
  Sender: FDA-Public Use
  Company Number: US-PFIZER INC-2014139460

PATIENT
  Age: 53 Year
  Sex: Female
  Weight: 81.63 kg

DRUGS (6)
  1. LYRICA [Suspect]
     Indication: FIBROMYALGIA
     Dosage: 50 MG, ONE 5 TIMES A DAY
     Route: 048
  2. LYRICA [Suspect]
     Dosage: 100 MG, 3X/DAY
     Route: 048
  3. NEXIUM [Concomitant]
     Dosage: ONCE A DAY
  4. ZANAFLEX [Concomitant]
     Indication: MUSCLE RELAXANT THERAPY
     Dosage: UNK, AS NEEDED
  5. XANAX [Concomitant]
     Dosage: ONCE A DAY
  6. LISINOPRIL [Concomitant]
     Indication: HYPERTENSION
     Dosage: UNK

REACTIONS (9)
  - Spinal fracture [Unknown]
  - Weight increased [Unknown]
  - Drug ineffective [Unknown]
  - Drug resistance [Unknown]
  - Activities of daily living impaired [Unknown]
  - Nausea [Unknown]
  - Dry skin [Unknown]
  - Amnesia [Unknown]
  - Burning sensation [Unknown]
